FAERS Safety Report 15931294 (Version 1)
Quarter: 2019Q1

REPORT INFORMATION
  Report Type: Spontaneous
  Country: FR (occurrence: FR)
  Receive Date: 20190207
  Receipt Date: 20190207
  Transmission Date: 20190417
  Serious: Yes (Hospitalization)
  Sender: FDA-Public Use
  Company Number: FR-SA-2019SA027519

PATIENT
  Age: 68 Year
  Sex: Male
  Weight: 76 kg

DRUGS (9)
  1. MIANSERIN HYDROCHLORIDE [Suspect]
     Active Substance: MIANSERIN HYDROCHLORIDE
     Indication: PRODUCT USED FOR UNKNOWN INDICATION
     Dosage: 15 MG, QD
     Route: 048
  2. DOCETAXEL. [Suspect]
     Active Substance: DOCETAXEL
     Indication: SQUAMOUS CELL CARCINOMA OF LUNG
     Dosage: 40 MG, QW
     Route: 042
     Dates: start: 20181022, end: 20181022
  3. ONDANSETRON [Suspect]
     Active Substance: ONDANSETRON
     Dosage: 8 MG, QW
     Route: 048
     Dates: start: 20181203, end: 20181203
  4. DOCETAXEL. [Suspect]
     Active Substance: DOCETAXEL
     Dosage: 40 MG, QW
     Route: 042
     Dates: start: 20181203, end: 20181203
  5. CALCIUM CARBONATE. [Suspect]
     Active Substance: CALCIUM CARBONATE
     Indication: PRODUCT USED FOR UNKNOWN INDICATION
     Dosage: 1000 MG, QD
     Route: 048
  6. ONDANSETRON [Suspect]
     Active Substance: ONDANSETRON
     Indication: PROPHYLAXIS
     Dosage: 8 MG, QW
     Route: 048
     Dates: start: 20181022, end: 20181022
  7. IMFINZI [Suspect]
     Active Substance: DURVALUMAB
     Indication: SQUAMOUS CELL CARCINOMA OF LUNG
     Dosage: 750 MG, UNK
     Route: 042
     Dates: start: 20181217, end: 20181217
  8. PERINDOPRIL [Suspect]
     Active Substance: PERINDOPRIL
     Indication: HYPERTENSION
     Dosage: UNK UNK, UNK
     Route: 048
  9. ALLOPURINOL. [Suspect]
     Active Substance: ALLOPURINOL
     Indication: GOUT
     Dosage: 100 MG, QD
     Route: 048

REACTIONS (2)
  - Cough [Recovering/Resolving]
  - Interstitial lung disease [Recovering/Resolving]

NARRATIVE: CASE EVENT DATE: 201812
